FAERS Safety Report 15920674 (Version 3)
Quarter: 2022Q4

REPORT INFORMATION
  Report Type: Spontaneous
  Country: FR (occurrence: FR)
  Receive Date: 20190205
  Receipt Date: 20221214
  Transmission Date: 20230112
  Serious: Yes (Other)
  Sender: FDA-Public Use
  Company Number: PHHY2018FR193178

PATIENT
  Sex: Male

DRUGS (6)
  1. AZOPT [Suspect]
     Active Substance: BRINZOLAMIDE
     Indication: Intraocular pressure increased
     Dosage: UNK, BID
     Route: 047
     Dates: start: 1994
  2. BETOPTIC [Suspect]
     Active Substance: BETAXOLOL HYDROCHLORIDE
     Indication: Intraocular pressure increased
     Dosage: UNK, BID
     Route: 047
     Dates: start: 1994
  3. BETOPTIC [Suspect]
     Active Substance: BETAXOLOL HYDROCHLORIDE
     Dosage: 2 DRP, BID, (1DROP IN EACH EYE MORNING AND EVENING)
     Route: 047
  4. TIMOLOL [Suspect]
     Active Substance: TIMOLOL
     Indication: Intraocular pressure increased
     Dosage: UNK, BID
     Route: 047
     Dates: start: 1994
  5. TIMOLOL [Suspect]
     Active Substance: TIMOLOL
     Dosage: 2 DRP, BID, (1DROP IN EACH EYE MORNING AND EVENING)
     Route: 047
  6. XALATAN [Suspect]
     Active Substance: LATANOPROST
     Indication: Intraocular pressure increased
     Dosage: 1 DRP, QD
     Route: 065

REACTIONS (12)
  - Intraocular pressure increased [Unknown]
  - Eye pain [Unknown]
  - Respiratory disorder [Recovered/Resolved]
  - Cardiac disorder [Recovered/Resolved]
  - Condition aggravated [Unknown]
  - Dyspnoea [Unknown]
  - Cardiac disorder [Unknown]
  - Asthma [Recovered/Resolved]
  - Chest pain [Unknown]
  - Chest pain [Recovered/Resolved]
  - Drug ineffective [Recovered/Resolved]
  - Drug ineffective [Unknown]

NARRATIVE: CASE EVENT DATE: 19940101
